FAERS Safety Report 13721765 (Version 2)
Quarter: 2017Q3

REPORT INFORMATION
  Report Type: Spontaneous
  Country: CA (occurrence: CA)
  Receive Date: 20170706
  Receipt Date: 20170804
  Transmission Date: 20171127
  Serious: Yes (Hospitalization, Other)
  Sender: FDA-Public Use
  Company Number: CA-TEVA-782608ACC

PATIENT
  Age: 19 Year
  Sex: Male

DRUGS (14)
  1. SALOFALK [Suspect]
     Active Substance: MESALAMINE
     Indication: COLITIS ULCERATIVE
  2. MULTIVITAMIN [Concomitant]
     Active Substance: VITAMINS
     Route: 048
  3. 5-ASA [Suspect]
     Active Substance: MESALAMINE
     Indication: COLITIS ULCERATIVE
  4. VITAMIN D [Concomitant]
     Active Substance: CHOLECALCIFEROL
  5. IRON SUCROSE [Concomitant]
     Active Substance: IRON SUCROSE
     Route: 042
     Dates: start: 20170620
  6. ACETAMINOPHEN. [Concomitant]
     Active Substance: ACETAMINOPHEN
     Dosage: 325MG-500MG PRN (AS NEEDED)
     Route: 048
  7. PREDNISONE. [Suspect]
     Active Substance: PREDNISONE
     Indication: COLITIS ULCERATIVE
     Dosage: 50 MILLIGRAM DAILY;
     Route: 048
  8. 5-ASA [Suspect]
     Active Substance: MESALAMINE
     Indication: COLITIS ULCERATIVE
     Route: 061
  9. GRAVOL [Concomitant]
     Active Substance: DIMENHYDRINATE
  10. CALCIUM CARBONATE. [Concomitant]
     Active Substance: CALCIUM CARBONATE
     Dosage: 2500 MILLIGRAM DAILY;
     Route: 048
  11. TUBERCULIN NOS [Concomitant]
     Active Substance: TUBERCULIN PURIFIED PROTEIN DERIVATIVE
     Dosage: 50 UNIT/ML
  12. HYDROMORPHONE [Concomitant]
     Active Substance: HYDROMORPHONE
  13. INFLECTRA [Concomitant]
     Active Substance: INFLIXIMAB-DYYB
     Indication: COLITIS ULCERATIVE
     Route: 042
     Dates: start: 20170614
  14. VITAMIN B1 [Concomitant]
     Active Substance: THIAMINE HYDROCHLORIDE
     Dosage: 200 MILLIGRAM DAILY; 200 MILLIGRAM (2 X 100MG DAILY)
     Route: 048

REACTIONS (5)
  - Drug ineffective [Unknown]
  - Abdominal pain [Recovering/Resolving]
  - Hypophagia [Recovered/Resolved]
  - Frequent bowel movements [Not Recovered/Not Resolved]
  - Decreased appetite [Recovered/Resolved]

NARRATIVE: CASE EVENT DATE: 201706
